FAERS Safety Report 8513123-2 (Version None)
Quarter: 2012Q3

REPORT INFORMATION
  Report Type: 
  Country: None (occurrence: None)
  Receive Date: 20120716
  Receipt Date: 20120709
  Transmission Date: 20120928
  Serious: Yes (Other)
  Sender: FDA-Public Use
  Company Number: US-JNJFOC-20120704664

PATIENT
  Age: 80 Year
  Sex: Female

DRUGS (3)
  1. TYLENOL (CAPLET) [Suspect]
     Indication: SINUS HEADACHE
     Dosage: 325MG/TABLET
     Route: 048
  2. GABAPENTIN [Suspect]
     Indication: TRIGEMINAL NEURALGIA
     Route: 065
  3. PRILOSEC [Suspect]
     Indication: PRODUCT USED FOR UNKNOWN INDICATION
     Route: 065

REACTIONS (8)
  - MENTAL IMPAIRMENT [None]
  - EXPRESSIVE LANGUAGE DISORDER [None]
  - HYPOREFLEXIA [None]
  - DIZZINESS [None]
  - LOGORRHOEA [None]
  - FATIGUE [None]
  - MANIA [None]
  - BALANCE DISORDER [None]
